FAERS Safety Report 4654860-X (Version None)
Quarter: 2005Q2

REPORT INFORMATION
  Report Type: 
  Country: None (occurrence: None)
  Receive Date: 20050505
  Receipt Date: 20050503
  Transmission Date: 20051028
  Serious: Yes (Death)
  Sender: FDA-Public Use
  Company Number: 05-05-0724

PATIENT
  Age: 79 Year
  Sex: Female

DRUGS (1)
  1. CLOZAPINE [Suspect]
     Indication: DEMENTIA
     Dosage: 100-300MG QD ORAL
     Route: 048
     Dates: start: 20041001, end: 20050401

REACTIONS (1)
  - SEPSIS [None]
